FAERS Safety Report 18324265 (Version 2)
Quarter: 2020Q4

REPORT INFORMATION
  Report Type: Report from Study
  Country: CN (occurrence: CN)
  Receive Date: 20200928
  Receipt Date: 20201002
  Transmission Date: 20210113
  Serious: Yes (Other)
  Sender: FDA-Public Use
  Company Number: CN-BRISTOL-MYERS SQUIBB COMPANY-BMS-2020-079029

PATIENT
  Age: 40 Year
  Sex: Female

DRUGS (5)
  1. GEMCITABINE HYDROCHLORIDE. [Suspect]
     Active Substance: GEMCITABINE HYDROCHLORIDE
     Dosage: 2.66 GRAM
     Route: 041
     Dates: start: 20200723, end: 20200731
  2. NIVOLUMAB [Suspect]
     Active Substance: NIVOLUMAB
     Indication: NASOPHARYNGEAL CANCER
     Dosage: 360 MILLIGRAM
     Route: 041
     Dates: start: 20200605, end: 20200731
  3. GEMCITABINE HYDROCHLORIDE. [Suspect]
     Active Substance: GEMCITABINE HYDROCHLORIDE
     Indication: NASOPHARYNGEAL CANCER
     Dosage: 3.3 GRAM
     Route: 041
     Dates: start: 20200605, end: 20200709
  4. CISPLATIN. [Suspect]
     Active Substance: CISPLATIN
     Dosage: 99.6 MILLIGRAM
     Route: 041
     Dates: start: 20200723, end: 20200731
  5. CISPLATIN. [Suspect]
     Active Substance: CISPLATIN
     Indication: NASOPHARYNGEAL CANCER
     Dosage: 134 MILLIGRAM
     Route: 041
     Dates: start: 20200605, end: 20200709

REACTIONS (2)
  - Anaemia [Unknown]
  - Myelosuppression [Unknown]

NARRATIVE: CASE EVENT DATE: 20200618
